FAERS Safety Report 6028892-3 (Version None)
Quarter: 2008Q4

REPORT INFORMATION
  Report Type: 
  Country: None (occurrence: None)
  Receive Date: 20081222
  Receipt Date: 20081029
  Transmission Date: 20090506
  Serious: No
  Sender: FDA-Public Use
  Company Number: ALL1-2008-03156

PATIENT
  Age: 23 Year
  Sex: Female
  Weight: 95.2 kg

DRUGS (1)
  1. VYVANSE [Suspect]
     Indication: ATTENTION DEFICIT/HYPERACTIVITY DISORDER
     Dosage: 40 MG, 2X/DAY:BID, ORAL
     Route: 048
     Dates: start: 20080801, end: 20080801

REACTIONS (7)
  - DRUG INEFFECTIVE [None]
  - HEADACHE [None]
  - IMPAIRED DRIVING ABILITY [None]
  - INAPPROPRIATE SCHEDULE OF DRUG ADMINISTRATION [None]
  - INSOMNIA [None]
  - OVERDOSE [None]
  - RASH [None]
